FAERS Safety Report 6630218-9 (Version None)
Quarter: 2010Q1

REPORT INFORMATION
  Report Type: 
  Country: None (occurrence: None)
  Receive Date: 20100311
  Receipt Date: 20100302
  Transmission Date: 20100710
  Serious: Yes (Other)
  Sender: FDA-Public Use
  Company Number: A0847820A

PATIENT
  Age: 66 Year
  Sex: Female

DRUGS (2)
  1. AVANDIA [Suspect]
     Indication: DRUG USE FOR UNKNOWN INDICATION
     Dosage: 2TAB TWICE PER DAY
     Route: 065
     Dates: start: 20020301, end: 20100101
  2. UNKNOWN MEDICATION [Concomitant]

REACTIONS (4)
  - ANAEMIA [None]
  - EYE HAEMORRHAGE [None]
  - FALL [None]
  - FRACTURE [None]
